FAERS Safety Report 9198523 (Version 1)
Quarter: 2013Q1

REPORT INFORMATION
  Report Type: Spontaneous
  Country: US (occurrence: US)
  Receive Date: 20130329
  Receipt Date: 20130329
  Transmission Date: 20140127
  Serious: Yes (Other)
  Sender: FDA-Public Use
  Company Number: PHEH2013US007121

PATIENT
  Sex: Male

DRUGS (8)
  1. DIOVAN [Suspect]
     Dosage: UNK UKN, UNK
     Dates: start: 2009, end: 201201
  2. DIOVAN [Suspect]
     Dosage: UNK UKN, UNK
     Dates: start: 201201
  3. METFORMIN [Concomitant]
  4. CRESTOR [Concomitant]
  5. EFFIENT [Concomitant]
  6. METOPROLOL [Concomitant]
  7. ASPIRIN [Concomitant]
  8. AMLODIPINE [Concomitant]

REACTIONS (1)
  - Weight decreased [Unknown]
